FAERS Safety Report 23792619 (Version 1)
Quarter: 2024Q2

REPORT INFORMATION
  Report Type: Spontaneous
  Country: US (occurrence: US)
  Receive Date: 20240429
  Receipt Date: 20240429
  Transmission Date: 20240716
  Serious: Yes (Hospitalization, Other)
  Sender: FDA-Public Use
  Company Number: US-BAYER-2024A059475

PATIENT
  Age: 63 Year
  Sex: Female

DRUGS (2)
  1. ALEVE [Suspect]
     Active Substance: NAPROXEN SODIUM
     Indication: Pain
     Dosage: 2 DF
     Route: 048
     Dates: start: 2020, end: 20240315
  2. ASPIRIN [Suspect]
     Active Substance: ASPIRIN
     Dosage: UNK

REACTIONS (4)
  - Ulcer haemorrhage [Unknown]
  - Renal disorder [Not Recovered/Not Resolved]
  - Duodenal ulcer [None]
  - Gastric ulcer [Unknown]

NARRATIVE: CASE EVENT DATE: 20240408
